FAERS Safety Report 10081528 (Version 2)
Quarter: 2014Q2

REPORT INFORMATION
  Report Type: Spontaneous
  Country: BR (occurrence: BR)
  Receive Date: 20140416
  Receipt Date: 20140512
  Transmission Date: 20141212
  Serious: Yes (Other)
  Sender: FDA-Public Use
  Company Number: BR-PFIZER INC-2014104731

PATIENT
  Sex: Male

DRUGS (1)
  1. PRISTIQ [Suspect]
     Indication: DEPRESSION
     Dosage: 50 MG, DAILY
     Dates: start: 201310

REACTIONS (4)
  - Intentional product misuse [Unknown]
  - Loss of consciousness [Unknown]
  - Paraesthesia [Recovering/Resolving]
  - Libido decreased [Not Recovered/Not Resolved]
